FAERS Safety Report 4970105-5 (Version None)
Quarter: 2006Q2

REPORT INFORMATION
  Report Type: 
  Country: None (occurrence: None)
  Receive Date: 20060412
  Receipt Date: 20060404
  Transmission Date: 20061013
  Serious: Yes (Death)
  Sender: FDA-Public Use
  Company Number: PHNU2006DE01587

PATIENT
  Sex: Male

DRUGS (1)
  1. CLOZAPINE [Suspect]
     Indication: PARKINSON'S DISEASE
     Dosage: 12.5 - 12.5 - 200 MG/DAY
     Route: 048

REACTIONS (3)
  - HOMICIDE [None]
  - THERAPEUTIC AGENT TOXICITY [None]
  - VICTIM OF HOMICIDE [None]
